FAERS Safety Report 12697665 (Version 2)
Quarter: 2016Q3

REPORT INFORMATION
  Report Type: Spontaneous
  Country: MX (occurrence: MX)
  Receive Date: 20160830
  Receipt Date: 20160906
  Transmission Date: 20161109
  Serious: Yes (Life-Threatening, Hospitalization, Other)
  Sender: FDA-Public Use
  Company Number: PHHY2016MX108715

PATIENT
  Age: 8 Year
  Sex: Female
  Weight: 25 kg

DRUGS (2)
  1. TRILEPTAL [Suspect]
     Active Substance: OXCARBAZEPINE
     Indication: PARTIAL SEIZURES
     Dosage: 2.5 ML, Q12H (10MG/KG/DAY)
     Route: 065
     Dates: start: 20160625
  2. TRILEPTAL [Suspect]
     Active Substance: OXCARBAZEPINE
     Dosage: 5 ML, Q12H (20MG/KG/DAY)
     Route: 065

REACTIONS (21)
  - Pyrexia [Unknown]
  - Pseudomonal sepsis [Unknown]
  - Nikolsky^s sign [Unknown]
  - Skin exfoliation [Unknown]
  - Dysphagia [Unknown]
  - Acinetobacter infection [Unknown]
  - Stevens-Johnson syndrome [Not Recovered/Not Resolved]
  - Rash macular [Not Recovered/Not Resolved]
  - Malaise [Unknown]
  - Sepsis [Unknown]
  - Skin discolouration [Unknown]
  - Arthralgia [Unknown]
  - Oral disorder [Unknown]
  - Pruritus [Unknown]
  - Conjunctival hyperaemia [Not Recovered/Not Resolved]
  - Rash papular [Unknown]
  - Necrosis [Unknown]
  - Pain [Unknown]
  - Headache [Unknown]
  - Conjunctivitis [Unknown]
  - Mucosal inflammation [Unknown]

NARRATIVE: CASE EVENT DATE: 20160712
